FAERS Safety Report 6209964-7 (Version None)
Quarter: 2009Q2

REPORT INFORMATION
  Report Type: 
  Country: None (occurrence: None)
  Receive Date: 20090601
  Receipt Date: 20090518
  Transmission Date: 20091009
  Serious: No
  Sender: FDA-Public Use
  Company Number: JP-PFIZER INC-2009183775

PATIENT

DRUGS (5)
  1. ZOLOFT [Suspect]
     Indication: DEPRESSION
     Dosage: 100 MG, 1X/DAY
     Route: 048
     Dates: start: 20080201
  2. ROHYPNOL [Suspect]
     Indication: INSOMNIA
     Dosage: 2 MG, 1X/DAY
     Route: 048
     Dates: start: 20080104
  3. RESLIN [Suspect]
     Indication: INSOMNIA
     Dates: start: 20081212
  4. DEPAKENE [Suspect]
     Indication: DYSTHYMIC DISORDER
     Route: 048
     Dates: start: 20090306, end: 20090403
  5. DOGMATYL [Concomitant]
     Route: 048
     Dates: start: 20080606, end: 20090306

REACTIONS (1)
  - SLEEP APNOEA SYNDROME [None]
